FAERS Safety Report 8830627 (Version 2)
Quarter: 2013Q1

REPORT INFORMATION
  Report Type: Spontaneous
  Country: JP (occurrence: JP)
  Receive Date: 20121009
  Receipt Date: 20130315
  Transmission Date: 20140127
  Serious: Yes (Hospitalization)
  Sender: FDA-Public Use
  Company Number: JP-SANOFI-AVENTIS-2012SA072973

PATIENT
  Age: 75 Year
  Sex: Male
  Weight: 68 kg

DRUGS (31)
  1. ELPLAT [Suspect]
     Indication: COLON CANCER
     Route: 041
     Dates: start: 20110125, end: 20110125
  2. ELPLAT [Suspect]
     Indication: COLON CANCER
     Route: 041
     Dates: start: 20110308, end: 20110308
  3. ELPLAT [Suspect]
     Indication: COLON CANCER
     Dosage: DOSE + DAILY DOSE- 130 MG/M2
     Route: 041
     Dates: start: 20110405, end: 20110405
  4. ELPLAT [Suspect]
     Indication: COLON CANCER
     Dosage: DOSE + DAILY DOSE- 130 MG/M2
     Route: 041
     Dates: start: 20110502, end: 20110502
  5. ELPLAT [Suspect]
     Indication: COLON CANCER
     Dosage: DOSE + DAILY DOSE- 130 MG/M2
     Route: 041
     Dates: start: 20110524, end: 20110524
  6. ELPLAT [Suspect]
     Indication: COLON CANCER
     Dosage: DOSE + DAILY DOSE- 130 MG/M2
     Route: 041
     Dates: start: 20110705, end: 20110705
  7. ELPLAT [Suspect]
     Indication: COLON CANCER
     Dosage: DOSE + DAILY DOSE- 130 MG/M2
     Route: 041
     Dates: start: 20110816, end: 20110816
  8. ELPLAT [Suspect]
     Indication: COLON CANCER
     Dosage: DOSE + DAILY DOSE- 130 MG/M2
     Route: 041
     Dates: start: 20110906, end: 20110906
  9. ELPLAT [Suspect]
     Indication: COLON CANCER
     Dosage: DOSE + DAILY DOSE- 130 MG/M2
     Route: 041
     Dates: start: 20110928, end: 20110928
  10. ELPLAT [Suspect]
     Indication: COLON CANCER
     Dosage: DOSE + DAILY DOSE- 130 MG/M2
     Route: 041
     Dates: start: 20111101, end: 20111101
  11. ELPLAT [Suspect]
     Indication: COLON CANCER
     Dosage: DOSE + DAILY DOSE- 130 MG/M2
     Route: 041
     Dates: start: 20111122, end: 20111122
  12. ELPLAT [Suspect]
     Indication: COLON CANCER
     Dosage: DOSE + DAILY DOSE- 130 MG/M2
     Route: 041
     Dates: start: 20111220, end: 20111220
  13. ELPLAT [Suspect]
     Indication: COLON CANCER
     Dosage: DOSE + DAILY DOSE- 130 MG/M2
     Route: 041
     Dates: start: 20120110, end: 20120110
  14. ELPLAT [Suspect]
     Indication: COLON CANCER
     Dosage: DOSE + DAILY DOSE- 130 MG/M2
     Route: 041
     Dates: start: 20120207, end: 20120207
  15. ELPLAT [Suspect]
     Indication: COLON CANCER
     Dosage: DOSE + DAILY DOSE- 130 MG/M2
     Route: 041
     Dates: start: 20120313, end: 20120313
  16. ELPLAT [Suspect]
     Indication: COLON CANCER
     Dosage: DOSE + DAILY DOSE- 130 MG/M2
     Route: 041
     Dates: start: 20120410, end: 20120410
  17. ELPLAT [Suspect]
     Indication: COLON CANCER
     Dosage: DOSE + DAILY DOSE- 130 MG/M2
     Route: 041
     Dates: start: 20120501, end: 20120501
  18. ELPLAT [Suspect]
     Indication: COLON CANCER
     Dosage: DOSE + DAILY DOSE- 130 MG/M2
     Route: 041
     Dates: start: 20120611, end: 20120611
  19. ELPLAT [Suspect]
     Indication: COLON CANCER
     Dosage: DOSE + DAILY DOSE- 130 MG/M2
     Route: 041
     Dates: start: 20120709, end: 20120709
  20. ELPLAT [Suspect]
     Indication: COLON CANCER
     Dosage: DOSE + DAILY DOSE- 130 MG/M2
     Route: 041
     Dates: start: 20120730, end: 20120730
  21. ELPLAT [Suspect]
     Indication: COLON CANCER
     Dosage: DOSE + DAILY DOSE- 130 MG/M2
     Route: 041
     Dates: start: 20120820, end: 20120820
  22. ELPLAT [Suspect]
     Indication: COLON CANCER
     Dosage: DOSE + DAILY DOSE- 130 MG/M2
     Route: 041
     Dates: start: 20120910, end: 20120910
  23. XELODA [Concomitant]
     Indication: COLON CANCER
     Dates: start: 20110125, end: 20110207
  24. XELODA [Concomitant]
     Indication: COLON CANCER
     Dates: start: 20110308, end: 20120731
  25. AVASTIN [Concomitant]
     Dates: start: 20110614, end: 20120820
  26. DEXAMETHASONE SODIUM PHOSPHATE [Concomitant]
     Dates: start: 20110125, end: 20120910
  27. KYTRIL [Concomitant]
     Dates: start: 20110125, end: 20120910
  28. AMARYL [Concomitant]
     Dates: start: 20110125
  29. CRAVIT [Concomitant]
     Dates: start: 20120709, end: 20120711
  30. SOLU-CORTEF [Concomitant]
     Dates: start: 20120730, end: 20120820
  31. ATARAX-P [Concomitant]
     Dates: start: 20120820, end: 20120820

REACTIONS (3)
  - Disseminated intravascular coagulation [Recovered/Resolved]
  - Platelet count decreased [Not Recovered/Not Resolved]
  - Pyrexia [Recovered/Resolved]
